FAERS Safety Report 4472812-X (Version None)
Quarter: 2004Q4

REPORT INFORMATION
  Report Type: 
  Country: None (occurrence: None)
  Receive Date: 20041008
  Receipt Date: 20040915
  Transmission Date: 20050328
  Serious: Yes (Other)
  Sender: FDA-Public Use
  Company Number: JP_040904543

PATIENT
  Age: 63 Year
  Sex: Female

DRUGS (2)
  1. GEMZAR [Suspect]
     Indication: PANCREATIC CARCINOMA METASTATIC
  2. TS 1 [Concomitant]

REACTIONS (6)
  - BILE DUCT STENT INSERTION [None]
  - LEUKOPENIA [None]
  - NEUTROPENIA [None]
  - SEPSIS [None]
  - STENT OCCLUSION [None]
  - SURGICAL PROCEDURE REPEATED [None]
